FAERS Safety Report 7480519-X (Version None)
Quarter: 2011Q2

REPORT INFORMATION
  Report Type: 
  Country: None (occurrence: None)
  Receive Date: 20110512
  Receipt Date: 20110512
  Transmission Date: 20111010
  Serious: Yes (Other)
  Sender: FDA-Public Use
  Company Number: None

PATIENT

DRUGS (1)
  1. ACTEMRA [Suspect]
     Indication: RHEUMATOID ARTHRITIS
     Dosage: 490MG Q4WEEKS IV
     Route: 042
     Dates: start: 20110202, end: 20110422

REACTIONS (4)
  - DIARRHOEA [None]
  - DIZZINESS [None]
  - HEPATIC ENZYME INCREASED [None]
  - HEADACHE [None]
